FAERS Safety Report 4358869-5 (Version None)
Quarter: 2004Q2

REPORT INFORMATION
  Report Type: 
  Country: None (occurrence: None)
  Receive Date: 20040512
  Receipt Date: 20040505
  Transmission Date: 20050107
  Serious: Yes (Death)
  Sender: FDA-Public Use
  Company Number: FR_040504043

PATIENT
  Age: 66 Year
  Sex: Female

DRUGS (1)
  1. EVISTA [Suspect]
     Indication: OSTEOPOROSIS
     Dosage: 60 MG DAY
     Route: 048
     Dates: start: 20030101, end: 20030301

REACTIONS (4)
  - COLON CANCER METASTATIC [None]
  - GENITAL HAEMORRHAGE [None]
  - METASTASES TO LIVER [None]
  - NAUSEA [None]
